FAERS Safety Report 20671770 (Version 3)
Quarter: 2022Q2

REPORT INFORMATION
  Report Type: Report from Study
  Country: US (occurrence: US)
  Receive Date: 20220405
  Receipt Date: 20220426
  Transmission Date: 20220721
  Serious: No
  Sender: FDA-Public Use
  Company Number: US-BEH-2022143622

PATIENT
  Sex: Female

DRUGS (1)
  1. HIZENTRA [Suspect]
     Active Substance: HUMAN IMMUNOGLOBULIN G
     Indication: Primary immunodeficiency syndrome
     Dosage: 10 GRAM, QW
     Route: 058

REACTIONS (7)
  - Injection site bruising [Recovered/Resolved]
  - Skin striae [Recovered/Resolved]
  - Injection site erythema [Recovered/Resolved]
  - Injection site extravasation [Recovered/Resolved]
  - Injection site bruising [Recovered/Resolved]
  - No adverse event [Unknown]
  - Therapy interrupted [Unknown]
